FAERS Safety Report 8507212 (Version 2)
Quarter: 2015Q1

REPORT INFORMATION
  Report Type: Spontaneous
  Country: US (occurrence: US)
  Receive Date: 20120412
  Receipt Date: 20150114
  Transmission Date: 20150721
  Serious: No
  Sender: FDA-Public Use
  Company Number: US-ASTRAZENECA-2011SE62387

PATIENT
  Age: 65 Year
  Sex: Female

DRUGS (3)
  1. CRESTOR [Suspect]
     Active Substance: ROSUVASTATIN CALCIUM
     Dosage: CUTTING CRESTOR IN HALF
     Route: 048
  2. NEXIUM [Suspect]
     Active Substance: ESOMEPRAZOLE MAGNESIUM
     Indication: ABDOMINAL PAIN UPPER
     Route: 048
  3. CRESTOR [Suspect]
     Active Substance: ROSUVASTATIN CALCIUM
     Route: 048

REACTIONS (5)
  - Product use issue [Unknown]
  - Abdominal pain upper [Unknown]
  - Wrong technique in drug usage process [Unknown]
  - Hepatic enzyme increased [Unknown]
  - Incorrect dose administered [Unknown]
